FAERS Safety Report 18964707 (Version 1)
Quarter: 2021Q1

REPORT INFORMATION
  Report Type: Spontaneous
  Country: US (occurrence: US)
  Receive Date: 20210303
  Receipt Date: 20210303
  Transmission Date: 20210420
  Serious: Yes (Death, Other)
  Sender: FDA-Public Use
  Company Number: US-AMGEN-USASP2021029509

PATIENT
  Age: 49 Year
  Sex: Male

DRUGS (9)
  1. MITOXANTRONE [Concomitant]
     Active Substance: MITOXANTRONE HYDROCHLORIDE
  2. 5?AZACYTIDINE [Concomitant]
     Active Substance: AZACITIDINE
  3. DASATINIB. [Concomitant]
     Active Substance: DASATINIB
  4. FILGRASTIM [Suspect]
     Active Substance: FILGRASTIM
     Indication: PROPHYLAXIS
     Dosage: UNK
     Route: 065
  5. FLUDARABINE [Concomitant]
     Active Substance: FLUDARABINE PHOSPHATE
  6. HYDREA [Concomitant]
     Active Substance: HYDROXYUREA
  7. DAUNORUBICIN [Concomitant]
     Active Substance: DAUNORUBICIN
  8. ARA?C [Concomitant]
     Active Substance: CYTARABINE
  9. CLADRIBINE. [Concomitant]
     Active Substance: CLADRIBINE

REACTIONS (3)
  - Gene mutation [Unknown]
  - Death [Fatal]
  - Leukaemia recurrent [Unknown]
